FAERS Safety Report 6167488-X (Version None)
Quarter: 2009Q2

REPORT INFORMATION
  Report Type: 
  Country: None (occurrence: None)
  Receive Date: 20090424
  Receipt Date: 20090423
  Transmission Date: 20091009
  Serious: No
  Sender: FDA-Public Use
  Company Number: US-B.I. PHARMACEUTICALS,INC./RIDGEFIELD-2009-BP-04338BP

PATIENT
  Sex: Female

DRUGS (3)
  1. SPIRIVA [Suspect]
     Indication: ASTHMA
     Dosage: 18MCG
     Route: 055
     Dates: start: 20090207
  2. ADVAIR HFA [Concomitant]
     Indication: ASTHMA
     Route: 055
  3. PROVENTIL [Concomitant]
     Indication: ASTHMA
     Route: 055

REACTIONS (3)
  - DRY MOUTH [None]
  - DRY THROAT [None]
  - DYSPHONIA [None]
